FAERS Safety Report 7669410-3 (Version None)
Quarter: 2011Q3

REPORT INFORMATION
  Report Type: 
  Country: None (occurrence: None)
  Receive Date: 20110808
  Receipt Date: 20110801
  Transmission Date: 20111222
  Serious: Yes (Death, Other)
  Sender: FDA-Public Use
  Company Number: BR-ROCHE-794335

PATIENT
  Age: 46 Year
  Sex: Male

DRUGS (5)
  1. GANCICLOVIR SODIUM [Suspect]
     Dosage: MAINTENANCE TREATMENT. STOPPED.
     Route: 042
  2. GANCICLOVIR SODIUM [Suspect]
     Dosage: INDUCTION TREATMENT.
     Route: 042
  3. GANCICLOVIR SODIUM [Suspect]
     Dosage: RESTARTED AFTER STOPPING INTRAVITREAL GANCICLOVIR
     Route: 042
  4. FILGRASTIM [Concomitant]
  5. GANCICLOVIR SODIUM [Suspect]
     Route: 031

REACTIONS (2)
  - SEPTIC SHOCK [None]
  - BONE MARROW FAILURE [None]
